FAERS Safety Report 23142558 (Version 1)
Quarter: 2023Q4

REPORT INFORMATION
  Report Type: Spontaneous
  Country: US (occurrence: None)
  Receive Date: 20231101
  Receipt Date: 20231101
  Transmission Date: 20240110
  Serious: Yes (Hospitalization)
  Sender: FDA-Public Use
  Company Number: None

PATIENT
  Sex: Female

DRUGS (1)
  1. LENALIDOMIDE [Suspect]
     Active Substance: LENALIDOMIDE
     Indication: Plasma cell myeloma
     Dosage: OTHER FREQUENCY : QD 14 D ON, 7D OFF;?
     Route: 048
     Dates: start: 202308

REACTIONS (4)
  - Fall [None]
  - Pulmonary thrombosis [None]
  - Thrombosis [None]
  - Tooth fracture [None]
